FAERS Safety Report 16014588 (Version 3)
Quarter: 2019Q2

REPORT INFORMATION
  Report Type: Spontaneous
  Country: US (occurrence: US)
  Receive Date: 20190227
  Receipt Date: 20190409
  Transmission Date: 20190711
  Serious: Yes (Death, Other)
  Sender: FDA-Public Use
  Company Number: US-ASTRAZENECA-2018SF25941

PATIENT
  Age: 752 Month
  Sex: Male

DRUGS (31)
  1. PRILOSEC [Suspect]
     Active Substance: OMEPRAZOLE MAGNESIUM
     Dosage: UNKNOWN
     Route: 048
     Dates: start: 20010513, end: 20171122
  2. PRILOSEC [Suspect]
     Active Substance: OMEPRAZOLE MAGNESIUM
     Dosage: 20.0MG UNKNOWN
     Route: 065
     Dates: start: 2001, end: 2009
  3. GABAPENTIN. [Concomitant]
     Active Substance: GABAPENTIN
     Dates: start: 20151013
  4. CLOPIDOGREL [Concomitant]
     Active Substance: CLOPIDOGREL BISULFATE
     Dates: start: 20151021
  5. AMLODIPINE [Concomitant]
     Active Substance: AMLODIPINE BESYLATE
     Dates: start: 20161103
  6. CEPHALEXIN. [Concomitant]
     Active Substance: CEPHALEXIN
  7. PRILOSEC [Suspect]
     Active Substance: OMEPRAZOLE MAGNESIUM
     Dosage: 20.0MG UNKNOWN
     Route: 048
     Dates: start: 1992, end: 2001
  8. PRILOSEC [Suspect]
     Active Substance: OMEPRAZOLE MAGNESIUM
     Dosage: GENERIC40.0MG UNKNOWN
     Route: 048
     Dates: start: 20171103
  9. DONEPEZIL. [Concomitant]
     Active Substance: DONEPEZIL
     Dates: start: 20161103
  10. DONEPEZIL. [Concomitant]
     Active Substance: DONEPEZIL
  11. AMOXICILLIN. [Concomitant]
     Active Substance: AMOXICILLIN
  12. PLAVIX [Concomitant]
     Active Substance: CLOPIDOGREL BISULFATE
  13. REFLEX [Concomitant]
     Active Substance: MIRTAZAPINE
  14. PINDOLOL. [Concomitant]
     Active Substance: PINDOLOL
     Dates: start: 20151013
  15. SIMVASTATIN. [Concomitant]
     Active Substance: SIMVASTATIN
     Dates: start: 20151023
  16. OXYCODONE [Concomitant]
     Active Substance: OXYCODONE
     Dates: start: 20151023
  17. ISOSORBIDE MONONITRATE. [Concomitant]
     Active Substance: ISOSORBIDE MONONITRATE
  18. LISINOPRIL. [Concomitant]
     Active Substance: LISINOPRIL
  19. GLIPIZIDE. [Concomitant]
     Active Substance: GLIPIZIDE
     Dates: start: 20151013
  20. ZETIA [Concomitant]
     Active Substance: EZETIMIBE
  21. TRAMADOL HYDROCHLORIDE. [Concomitant]
     Active Substance: TRAMADOL HYDROCHLORIDE
  22. BACLOFEN. [Concomitant]
     Active Substance: BACLOFEN
     Dates: start: 20151013
  23. LISINOPRIL. [Concomitant]
     Active Substance: LISINOPRIL
     Dates: start: 20151023
  24. SIMVASTATIN. [Concomitant]
     Active Substance: SIMVASTATIN
  25. PRILOSEC [Suspect]
     Active Substance: OMEPRAZOLE MAGNESIUM
     Dosage: GENERIC40.0MG UNKNOWN
     Route: 048
     Dates: start: 20120505
  26. PREVACID 24 HR [Suspect]
     Active Substance: LANSOPRAZOLE
     Route: 065
  27. ERYTHROMYCIN. [Concomitant]
     Active Substance: ERYTHROMYCIN
  28. ASPIRIN. [Concomitant]
     Active Substance: ASPIRIN
  29. BENADRYL [Concomitant]
     Active Substance: DIPHENHYDRAMINE HYDROCHLORIDE
  30. PRILOSEC [Suspect]
     Active Substance: OMEPRAZOLE MAGNESIUM
     Dosage: UNKNOWN
     Route: 048
     Dates: start: 201201, end: 201711
  31. PRILOSEC OTC [Suspect]
     Active Substance: OMEPRAZOLE MAGNESIUM
     Route: 048
     Dates: start: 201201, end: 201711

REACTIONS (8)
  - Renal injury [Unknown]
  - Hypertension [Fatal]
  - Coronary artery disease [Fatal]
  - Diabetes mellitus [Fatal]
  - Chronic kidney disease [Unknown]
  - Acute kidney injury [Unknown]
  - Renal failure [Fatal]
  - Renal disorder [Fatal]

NARRATIVE: CASE EVENT DATE: 201306
